FAERS Safety Report 7245154-7 (Version None)
Quarter: 2011Q1

REPORT INFORMATION
  Report Type: 
  Country: None (occurrence: None)
  Receive Date: 20110126
  Receipt Date: 20110121
  Transmission Date: 20110831
  Serious: Yes (Hospitalization)
  Sender: FDA-Public Use
  Company Number: FR-SANOFI-AVENTIS-2011SA004083

PATIENT
  Age: 81 Year
  Sex: Male

DRUGS (4)
  1. AUGMENTIN '125' [Concomitant]
     Indication: BRONCHITIS
     Route: 065
     Dates: start: 20110101
  2. ANTIBIOTICS [Concomitant]
     Indication: CLOSTRIDIUM DIFFICILE COLITIS
     Route: 065
  3. PREVISCAN [Concomitant]
     Indication: ATRIAL FIBRILLATION
     Route: 048
     Dates: start: 20101001
  4. MULTAQ [Suspect]
     Indication: ATRIAL FIBRILLATION
     Route: 048
     Dates: start: 20101001

REACTIONS (4)
  - ABDOMINAL PAIN [None]
  - RENAL NEOPLASM [None]
  - CHOLESTASIS [None]
  - GENERAL PHYSICAL HEALTH DETERIORATION [None]
